FAERS Safety Report 12173845 (Version 1)
Quarter: 2016Q1

REPORT INFORMATION
  Report Type: Spontaneous
  Country: US (occurrence: US)
  Receive Date: 20160314
  Receipt Date: 20160314
  Transmission Date: 20160526
  Serious: Yes (Other)
  Sender: FDA-Public Use
  Company Number: US-AMGEN-USASP2016028074

PATIENT
  Age: 15 Year
  Sex: Male

DRUGS (4)
  1. EPOGEN [Suspect]
     Active Substance: ERYTHROPOIETIN
     Indication: RENAL FAILURE
     Dosage: UNK
     Route: 065
     Dates: start: 2015, end: 201512
  2. ARANESP [Suspect]
     Active Substance: DARBEPOETIN ALFA
     Dosage: 25 MUG, UNK
     Route: 065
     Dates: start: 20151216
  3. EPOGEN [Suspect]
     Active Substance: ERYTHROPOIETIN
     Dosage: 10000 UNIT, THREE TIMES A WEEK
     Route: 058
     Dates: start: 20160104, end: 201602
  4. ARANESP [Suspect]
     Active Substance: DARBEPOETIN ALFA
     Indication: PRODUCT USED FOR UNKNOWN INDICATION
     Dosage: UNK
     Route: 065

REACTIONS (3)
  - Haemoglobin decreased [Unknown]
  - Drug ineffective [Not Recovered/Not Resolved]
  - Liver transplant [Unknown]

NARRATIVE: CASE EVENT DATE: 201512
